FAERS Safety Report 4342441-7 (Version None)
Quarter: 2004Q1

REPORT INFORMATION
  Report Type: 
  Country: None (occurrence: None)
  Receive Date: 20040213
  Receipt Date: 20031120
  Transmission Date: 20041129
  Serious: Yes (Life-Threatening, Hospitalization)
  Sender: FDA-Public Use
  Company Number: 339643

PATIENT
  Sex: Male

DRUGS (2)
  1. PEGASYS [Suspect]
     Indication: HEPATITIS C
     Dosage: SUBCUTANEOUS
     Route: 058
     Dates: start: 20030111, end: 20030412
  2. COPEGUS [Suspect]
     Indication: HEPATITIS C
     Dosage: ORAL
     Route: 048
     Dates: start: 20030111, end: 20030412

REACTIONS (9)
  - AGGRESSION [None]
  - AMNESIA [None]
  - ANGER [None]
  - CONFUSIONAL STATE [None]
  - IRRITABILITY [None]
  - NERVOUSNESS [None]
  - PARANOIA [None]
  - PYREXIA [None]
  - SUICIDE ATTEMPT [None]
